FAERS Safety Report 9173827 (Version 2)
Quarter: 2013Q3

REPORT INFORMATION
  Report Type: Spontaneous
  Country: US (occurrence: US)
  Receive Date: 20130320
  Receipt Date: 20130814
  Transmission Date: 20140515
  Serious: Yes (Death)
  Sender: FDA-Public Use
  Company Number: US-ENDO PHARMACEUTICALS INC.-MSER20130010

PATIENT
  Age: 13 Month
  Sex: Female

DRUGS (2)
  1. MORPHINE SULFATE ER 30MG [Suspect]
     Indication: ACCIDENTAL EXPOSURE TO PRODUCT BY CHILD
     Route: 048
     Dates: start: 20100626, end: 20100626
  2. PEDIASURE [Concomitant]
     Indication: PRODUCT USED FOR UNKNOWN INDICATION
     Dosage: 1 BOTTLE
     Route: 048

REACTIONS (2)
  - Toxicity to various agents [Fatal]
  - Accidental exposure to product by child [Fatal]
